FAERS Safety Report 25606811 (Version 1)
Quarter: 2025Q3

REPORT INFORMATION
  Report Type: Spontaneous
  Country: US (occurrence: US)
  Receive Date: 20250725
  Receipt Date: 20250725
  Transmission Date: 20251021
  Serious: Yes (Other)
  Sender: PFIZER
  Company Number: US-PFIZER INC-202500149428

PATIENT
  Age: 80 Year
  Sex: Female

DRUGS (1)
  1. OXALIPLATIN [Suspect]
     Active Substance: OXALIPLATIN

REACTIONS (9)
  - Pancreatic atrophy [Unknown]
  - Intraductal papillary mucinous neoplasm [Unknown]
  - Deafness [Unknown]
  - Malignant neoplasm progression [Unknown]
  - Salivary gland mass [Recovered/Resolved]
  - Normochromic anaemia [Unknown]
  - Disease recurrence [Unknown]
  - Vitamin D deficiency [Unknown]
  - Hepatic lesion [Unknown]
